FAERS Safety Report 9514708 (Version 1)
Quarter: 2013Q1

REPORT INFORMATION
  Report Type: Spontaneous
  Country: US (occurrence: None)
  Receive Date: 20130305
  Receipt Date: 20130305
  Transmission Date: 20140127
  Serious: Yes (Hospitalization)
  Sender: FDA-Public Use
  Company Number: 163-21880-12123116

PATIENT
  Age: 74 Year
  Sex: Male

DRUGS (2)
  1. REVLIMID [Suspect]
     Indication: PLASMA CELL MYELOMA
     Dosage: 5 MG, TUE, THURS, SAT, PO
     Route: 048
     Dates: start: 20110204
  2. BLOOD (BLOOD AND RELATED PRODUCTS) (UNKNOWN) [Concomitant]

REACTIONS (2)
  - Rib fracture [None]
  - Full blood count decreased [None]
